FAERS Safety Report 8508069-X (Version None)
Quarter: 2012Q3

REPORT INFORMATION
  Report Type: 
  Country: None (occurrence: None)
  Receive Date: 20120713
  Receipt Date: 20120704
  Transmission Date: 20120928
  Serious: Yes (Hospitalization)
  Sender: FDA-Public Use
  Company Number: JP-SANOFI-AVENTIS-2012SA049174

PATIENT
  Age: 91 Year
  Sex: Female
  Weight: 37.7 kg

DRUGS (3)
  1. FUROSEMIDE [Suspect]
     Route: 048
  2. FUROSEMIDE [Suspect]
     Route: 042
  3. FUROSEMIDE [Suspect]
     Route: 048

REACTIONS (11)
  - NYSTAGMUS [None]
  - HYPOTENSION [None]
  - TONGUE DRY [None]
  - CEREBELLAR INFARCTION [None]
  - NAUSEA [None]
  - DEHYDRATION [None]
  - VOMITING [None]
  - DRY SKIN [None]
  - DIZZINESS [None]
  - THIRST [None]
  - ATAXIA [None]
